FAERS Safety Report 7518156-0 (Version None)
Quarter: 2011Q2

REPORT INFORMATION
  Report Type: 
  Country: None (occurrence: None)
  Receive Date: 20110602
  Receipt Date: 20110521
  Transmission Date: 20111010
  Serious: Yes (Other)
  Sender: FDA-Public Use
  Company Number: US-PAR PHARMACEUTICAL, INC-2011SCPR003008

PATIENT
  Age: 94 Year
  Sex: Male

DRUGS (1)
  1. MEGESTROL ACETATE [Suspect]
     Indication: DECREASED APPETITE
     Dosage: UNK, UNKNOWN
     Route: 065

REACTIONS (3)
  - AZOTAEMIA [None]
  - SECONDARY ADRENOCORTICAL INSUFFICIENCY [None]
  - HYPERKALAEMIA [None]
